FAERS Safety Report 8167910-3 (Version None)
Quarter: 2012Q1

REPORT INFORMATION
  Report Type: 
  Country: None (occurrence: None)
  Receive Date: 20120227
  Receipt Date: 20120216
  Transmission Date: 20120608
  Serious: Yes (Hospitalization)
  Sender: FDA-Public Use
  Company Number: US-GLAXOSMITHKLINE-A0886482A

PATIENT
  Age: 45 Year
  Sex: Male

DRUGS (5)
  1. ZOCOR [Concomitant]
  2. LISINOPRIL [Concomitant]
  3. JANUVIA [Concomitant]
  4. GLIPIZIDE [Concomitant]
  5. AVANDAMET [Suspect]
     Indication: DIABETES MELLITUS
     Route: 048
     Dates: start: 20070905, end: 20081101

REACTIONS (3)
  - CARDIAC DISORDER [None]
  - MYOCARDIAL INFARCTION [None]
  - CARDIAC FAILURE CONGESTIVE [None]
